FAERS Safety Report 13867047 (Version 1)
Quarter: 2017Q3

REPORT INFORMATION
  Report Type: Report from Study
  Country: US (occurrence: US)
  Receive Date: 20170814
  Receipt Date: 20170814
  Transmission Date: 20171127
  Serious: No
  Sender: FDA-Public Use
  Company Number: US-ACADIA PHARMACEUTICALS INC.-ACA-2017-003809

PATIENT
  Age: 60 Year
  Sex: Male
  Weight: 88.44 kg

DRUGS (2)
  1. NUPLAZID [Suspect]
     Active Substance: PIMAVANSERIN TARTRATE
     Indication: PARKINSON^S DISEASE PSYCHOSIS
     Dosage: 17 MG, QD
     Route: 048
  2. NUPLAZID [Suspect]
     Active Substance: PIMAVANSERIN TARTRATE
     Indication: HALLUCINATION
     Dosage: UNK UNK, QD
     Route: 048
     Dates: start: 201705

REACTIONS (2)
  - Hallucination, visual [Unknown]
  - Condition aggravated [Unknown]

NARRATIVE: CASE EVENT DATE: 201705
